FAERS Safety Report 20562875 (Version 4)
Quarter: 2023Q1

REPORT INFORMATION
  Report Type: Other
  Country: US (occurrence: None)
  Receive Date: 20220307
  Receipt Date: 20230217
  Transmission Date: 20230418
  Serious: No
  Sender: FDA-Public Use
  Company Number: US-ROCHE-3040371

PATIENT
  Age: 40 Year
  Sex: Female
  Weight: 53.572 kg

DRUGS (6)
  1. OCREVUS [Suspect]
     Active Substance: OCRELIZUMAB
     Indication: Relapsing-remitting multiple sclerosis
     Dosage: TWO 300 MG VIALS- 600 MG
     Route: 042
     Dates: start: 202006
  2. OCREVUS [Suspect]
     Active Substance: OCRELIZUMAB
     Route: 042
     Dates: start: 20190909
  3. OCREVUS [Suspect]
     Active Substance: OCRELIZUMAB
     Route: 042
     Dates: start: 201901, end: 202106
  4. CASIRIVIMAB [Concomitant]
     Active Substance: CASIRIVIMAB
  5. IMDEVIMAB [Concomitant]
     Active Substance: IMDEVIMAB
  6. LEVOTHYROXINE [Concomitant]
     Active Substance: LEVOTHYROXINE

REACTIONS (2)
  - Maternal exposure before pregnancy [Unknown]
  - COVID-19 [Recovered/Resolved]

NARRATIVE: CASE EVENT DATE: 20211107
